FAERS Safety Report 8262287-7 (Version None)
Quarter: 2012Q2

REPORT INFORMATION
  Report Type: 
  Country: None (occurrence: None)
  Receive Date: 20120405
  Receipt Date: 20120323
  Transmission Date: 20120825
  Serious: Yes (Hospitalization, Other)
  Sender: FDA-Public Use
  Company Number: HU-ELI_LILLY_AND_COMPANY-HU201203007543

PATIENT
  Age: 44 Year
  Sex: Male

DRUGS (5)
  1. AFLAMIN [Concomitant]
  2. RAMIPRIL [Concomitant]
  3. TENSIOMIN [Concomitant]
  4. TRAMADOL HCL [Concomitant]
  5. PEMETREXED [Suspect]
     Indication: NON-SMALL CELL LUNG CANCER
     Dosage: 1000 MG, UNK
     Route: 042
     Dates: start: 20111222, end: 20120202

REACTIONS (5)
  - PANCYTOPENIA [None]
  - MUCOSAL INFLAMMATION [None]
  - DIARRHOEA [None]
  - GASTRIC ULCER [None]
  - RASH [None]
